FAERS Safety Report 5051732-6 (Version None)
Quarter: 2006Q3

REPORT INFORMATION
  Report Type: 
  Country: None (occurrence: None)
  Receive Date: 20060711
  Receipt Date: 20060706
  Transmission Date: 20061208
  Serious: Yes (Other)
  Sender: FDA-Public Use
  Company Number: 200611487BCC

PATIENT
  Sex: Male

DRUGS (1)
  1. MILK OF MAGNESIA TAB [Suspect]
     Indication: CONSTIPATION
     Dosage: ONCE, ORAL
     Route: 048

REACTIONS (1)
  - RECTAL HAEMORRHAGE [None]
